FAERS Safety Report 5703181-2 (Version None)
Quarter: 2008Q2

REPORT INFORMATION
  Report Type: 
  Country: None (occurrence: None)
  Receive Date: 20080411
  Receipt Date: 20080314
  Transmission Date: 20081010
  Serious: No
  Sender: FDA-Public Use
  Company Number: US-BAYER-200816882NA

PATIENT
  Age: 41 Year
  Sex: Female
  Weight: 73 kg

DRUGS (8)
  1. YAZ [Suspect]
     Indication: DEPRESSION
     Route: 048
  2. MOBIC [Concomitant]
  3. RITOXIN- NOS [Concomitant]
     Indication: DRUG USE FOR UNKNOWN INDICATION
  4. SYNTHROID [Concomitant]
  5. PREDNISONE [Concomitant]
  6. METHOTREXATE [Concomitant]
  7. CELEXA [Concomitant]
  8. XANAX [Concomitant]

REACTIONS (3)
  - ASTHENIA [None]
  - DIZZINESS [None]
  - FATIGUE [None]
